FAERS Safety Report 20643077 (Version 1)
Quarter: 2022Q1

REPORT INFORMATION
  Report Type: Report from Study
  Country: US (occurrence: US)
  Receive Date: 20220328
  Receipt Date: 20220328
  Transmission Date: 20220423
  Serious: Yes (Other)
  Sender: FDA-Public Use
  Company Number: US-ABBVIE-21K-163-4043540-00

PATIENT
  Sex: Female
  Weight: 74.910 kg

DRUGS (4)
  1. HUMIRA [Suspect]
     Active Substance: ADALIMUMAB
     Indication: Psoriatic arthropathy
     Route: 058
  2. HUMIRA [Suspect]
     Active Substance: ADALIMUMAB
     Indication: Blood cholesterol increased
     Route: 058
  3. REPATHA [Concomitant]
     Active Substance: EVOLOCUMAB
     Indication: Blood cholesterol increased
  4. PFIZER-BIONTECH COVID-19 VACCINE [Concomitant]
     Active Substance: TOZINAMERAN
     Indication: COVID-19 immunisation
     Route: 030
     Dates: start: 20210801, end: 20210801

REACTIONS (7)
  - Basal cell carcinoma [Recovering/Resolving]
  - Skin cancer [Recovered/Resolved]
  - Photosensitivity reaction [Recovered/Resolved]
  - Nasal disorder [Unknown]
  - Urine abnormality [Unknown]
  - Skin odour abnormal [Unknown]
  - Cystitis [Unknown]

NARRATIVE: CASE EVENT DATE: 20210101
